FAERS Safety Report 10633644 (Version 1)
Quarter: 2014Q4

REPORT INFORMATION
  Report Type: Spontaneous
  Country: US (occurrence: None)
  Receive Date: 20141203
  Receipt Date: 20141203
  Transmission Date: 20150529
  Serious: Yes (Other)
  Sender: FDA-Public Use
  Company Number: 2014SA161602

PATIENT
  Sex: Female

DRUGS (1)
  1. MENTHOL. [Suspect]
     Active Substance: MENTHOL
     Route: 061

REACTIONS (3)
  - Wrong technique in drug usage process [None]
  - Chemical injury [None]
  - Application site burn [None]
